FAERS Safety Report 9915680 (Version 2)
Quarter: 2014Q1

REPORT INFORMATION
  Report Type: Report from Study
  Country: CN (occurrence: CN)
  Receive Date: 20140221
  Receipt Date: 20140306
  Transmission Date: 20141002
  Serious: Yes (Death, Hospitalization)
  Sender: FDA-Public Use
  Company Number: CN-ROCHE-1347819

PATIENT
  Age: 63 Year
  Sex: Female
  Weight: 83 kg

DRUGS (7)
  1. OBINUTUZUMAB [Suspect]
     Indication: CHRONIC LYMPHOCYTIC LEUKAEMIA
     Dosage: DATE OF MOST RECENT DOSE PRIOR TO AE ONSET: 21/NOV/2013, LAST DOSE WAS 1000 MG
     Route: 042
     Dates: start: 20130605
  2. HEPARIN SODIUM [Concomitant]
     Route: 045
     Dates: start: 20140204, end: 20140204
  3. INDOMETHACIN SUPPOSITORY [Concomitant]
     Route: 065
     Dates: start: 20140203, end: 20140203
  4. MOSAPRIDE CITRATE [Concomitant]
     Route: 048
     Dates: start: 20140204, end: 20140204
  5. BURNET ROOT [Concomitant]
     Route: 048
     Dates: start: 20140205, end: 20140205
  6. AMINO ACID [Concomitant]
     Route: 042
     Dates: start: 20140208, end: 20140208
  7. ALANYL-GLUTAMINE [Concomitant]
     Route: 065
     Dates: start: 20140208, end: 20140208

REACTIONS (1)
  - Interstitial lung disease [Fatal]
